FAERS Safety Report 7712797-3 (Version None)
Quarter: 2011Q3

REPORT INFORMATION
  Report Type: 
  Country: None (occurrence: None)
  Receive Date: 20110826
  Receipt Date: 20110822
  Transmission Date: 20111222
  Serious: Yes (Life-Threatening, Hospitalization, Other)
  Sender: FDA-Public Use
  Company Number: MD-GLAXOSMITHKLINE-B0734598A

PATIENT
  Age: 43 Year
  Sex: Female
  Weight: 75 kg

DRUGS (1)
  1. CEFTAZIDIME SODIUM [Suspect]
     Indication: PRODUCT USED FOR UNKNOWN INDICATION
     Dosage: 2G PER DAY
     Route: 042
     Dates: start: 20110622, end: 20110622

REACTIONS (11)
  - DIZZINESS [None]
  - INJECTION SITE PAIN [None]
  - DERMATITIS ALLERGIC [None]
  - LOSS OF CONSCIOUSNESS [None]
  - ALLERGIC OEDEMA [None]
  - BRONCHOSPASM [None]
  - SYNCOPE [None]
  - ANAPHYLACTIC SHOCK [None]
  - OEDEMA [None]
  - DYSPNOEA [None]
  - HYPOTENSION [None]
